FAERS Safety Report 11213269 (Version 1)
Quarter: 2015Q2

REPORT INFORMATION
  Report Type: Spontaneous
  Country: US (occurrence: US)
  Receive Date: 20150623
  Receipt Date: 20150623
  Transmission Date: 20150821
  Serious: Yes (Hospitalization)
  Sender: FDA-Public Use
  Company Number: US-GLAXOSMITHKLINE-US2015GSK086925

PATIENT
  Age: 56 Year
  Sex: Female
  Weight: 104.31 kg

DRUGS (11)
  1. LYRICA [Suspect]
     Active Substance: PREGABALIN
     Indication: NEURALGIA
     Dosage: 600 MG, U
     Dates: start: 201209
  2. XANAX [Suspect]
     Active Substance: ALPRAZOLAM
     Indication: PANIC ATTACK
     Dosage: 0.5 MG, QID (1 TAB IN MORNING, 1 IN AFTERNOON, AND 2 BEFORE SLEEP)
     Route: 065
     Dates: start: 201308
  3. NEXIUM [Concomitant]
     Active Substance: ESOMEPRAZOLE MAGNESIUM
  4. NITROGLYCERIN. [Concomitant]
     Active Substance: NITROGLYCERIN
  5. OXYCODONE AND ACETAMINOPHEN [Concomitant]
     Active Substance: ACETAMINOPHEN\OXYCODONE\OXYCODONE HYDROCHLORIDE
  6. VENTOLIN [Suspect]
     Active Substance: ALBUTEROL SULFATE
     Indication: ASTHMA
     Dosage: UNK, U
     Route: 065
  7. CHLORTHALIDONE. [Concomitant]
     Active Substance: CHLORTHALIDONE
  8. COMBIVENT [Concomitant]
     Active Substance: ALBUTEROL SULFATE\IPRATROPIUM BROMIDE
  9. LYRICA [Suspect]
     Active Substance: PREGABALIN
     Dosage: 50 OR 25 MG , UNK
     Route: 065
     Dates: start: 201307
  10. MELOXICAM. [Concomitant]
     Active Substance: MELOXICAM
  11. POTASSIUM CHLORIDE. [Concomitant]
     Active Substance: POTASSIUM CHLORIDE

REACTIONS (13)
  - Dyspnoea [Unknown]
  - Amnesia [Not Recovered/Not Resolved]
  - Neck surgery [Unknown]
  - Balance disorder [Unknown]
  - Weight increased [Not Recovered/Not Resolved]
  - Pain [Not Recovered/Not Resolved]
  - Heart rate irregular [Recovered/Resolved]
  - Vertigo [Unknown]
  - Chest pain [Unknown]
  - Hypotension [Not Recovered/Not Resolved]
  - Treatment noncompliance [Unknown]
  - Withdrawal syndrome [Not Recovered/Not Resolved]
  - Drug ineffective [Unknown]

NARRATIVE: CASE EVENT DATE: 2012
